FAERS Safety Report 7642913-3 (Version None)
Quarter: 2011Q3

REPORT INFORMATION
  Report Type: 
  Country: None (occurrence: None)
  Receive Date: 20110728
  Receipt Date: 20110720
  Transmission Date: 20111222
  Serious: Yes (Other)
  Sender: FDA-Public Use
  Company Number: US-ASTRAZENECA-2007UW18817

PATIENT
  Age: 608 Month
  Sex: Female
  Weight: 74.8 kg

DRUGS (8)
  1. SEROQUEL [Suspect]
     Dosage: 75 MG, 150 MG, 300 MG
     Route: 048
     Dates: start: 20020101, end: 20060201
  2. LISINOPRIL [Concomitant]
     Dates: start: 20061219
  3. SEROQUEL [Suspect]
     Indication: DEPRESSION
     Dosage: 75 MG, 150 MG, 300 MG
     Route: 048
     Dates: start: 19980401, end: 19990201
  4. SEROQUEL [Suspect]
     Dosage: 75 MG, 150 MG, 300 MG
     Route: 048
     Dates: start: 20020101, end: 20060201
  5. METHADONE HYDROCHLORIDE [Concomitant]
  6. AMBIEN [Concomitant]
     Dates: start: 20050831
  7. SEROQUEL [Suspect]
     Indication: SLEEP DISORDER
     Dosage: 75 MG, 150 MG, 300 MG
     Route: 048
     Dates: start: 19980401, end: 19990201
  8. NAPROXEN [Concomitant]
     Dosage: 250 TO 375 MG
     Dates: start: 20061127

REACTIONS (3)
  - NEUROPATHY PERIPHERAL [None]
  - BLOOD CHOLESTEROL INCREASED [None]
  - TYPE 2 DIABETES MELLITUS [None]
